FAERS Safety Report 6902741-0 (Version None)
Quarter: 2010Q3

REPORT INFORMATION
  Report Type: 
  Country: None (occurrence: None)
  Receive Date: 20100803
  Receipt Date: 20080729
  Transmission Date: 20110219
  Serious: No
  Sender: FDA-Public Use
  Company Number: US-PFIZER INC-2008063670

PATIENT
  Sex: Female
  Weight: 62.3 kg

DRUGS (8)
  1. LYRICA [Suspect]
     Indication: TREMOR
     Dates: start: 20080729
  2. NEURONTIN [Concomitant]
  3. ISOSORBIDE [Concomitant]
  4. LISINOPRIL [Concomitant]
  5. ASPIRIN [Concomitant]
  6. FOLIC ACID [Concomitant]
  7. VITAMIN B6 [Concomitant]
  8. VITAMIN B-12 [Concomitant]

REACTIONS (1)
  - GASTRIC DISORDER [None]
